FAERS Safety Report 25598576 (Version 1)
Quarter: 2025Q3

REPORT INFORMATION
  Report Type: Spontaneous
  Country: US (occurrence: US)
  Receive Date: 20250723
  Receipt Date: 20250723
  Transmission Date: 20251021
  Serious: No
  Sender: JOHNSON AND JOHNSON
  Company Number: US-JNJFOC-20250725209

PATIENT

DRUGS (3)
  1. INVEGA [Suspect]
     Active Substance: PALIPERIDONE
     Indication: Product used for unknown indication
     Route: 030
  2. INVEGA [Suspect]
     Active Substance: PALIPERIDONE
  3. INVEGA [Suspect]
     Active Substance: PALIPERIDONE

REACTIONS (1)
  - Somnolence [Unknown]
